FAERS Safety Report 6620137-6 (Version None)
Quarter: 2010Q1

REPORT INFORMATION
  Report Type: 
  Country: None (occurrence: None)
  Receive Date: 20100309
  Receipt Date: 20060407
  Transmission Date: 20100710
  Serious: Yes (Life-Threatening, Hospitalization)
  Sender: FDA-Public Use
  Company Number: HQWYE290110MAR06

PATIENT
  Sex: Female
  Weight: 72.64 kg

DRUGS (6)
  1. NEUMEGA [Suspect]
     Indication: THROMBOCYTOPENIA
     Dosage: 3.6 MG X3 DAYS (50 UG/KG DAILY)
     Route: 058
     Dates: start: 20060216, end: 20060218
  2. UNSPECIFIED ANTINEOPLASTIC AGENT [Concomitant]
     Indication: NON-HODGKIN'S LYMPHOMA
     Dosage: ^ZEVALIN^ (IBRITUMOMAB TIUXETAN), DOSE NOT PROVIDED
  3. VINCRISTINE [Concomitant]
     Indication: NON-HODGKIN'S LYMPHOMA
     Dosage: DOSE NOT PROVIDED
  4. PREDNISONE [Concomitant]
     Indication: NON-HODGKIN'S LYMPHOMA
     Dosage: DOSE NOT PROVIDED
  5. CYCLOPHOSPHAMIDE [Concomitant]
     Indication: NON-HODGKIN'S LYMPHOMA
     Dosage: DOSE NOT PROVIDED
  6. DOXORUBICIN [Concomitant]
     Indication: NON-HODGKIN'S LYMPHOMA
     Dosage: DOSE NOT PROVIDED

REACTIONS (2)
  - CAPILLARY LEAK SYNDROME [None]
  - PULMONARY OEDEMA [None]
